FAERS Safety Report 4788314-7 (Version None)
Quarter: 2005Q4

REPORT INFORMATION
  Report Type: 
  Country: None (occurrence: None)
  Receive Date: 20051005
  Receipt Date: 20050926
  Transmission Date: 20060501
  Serious: Yes (Other)
  Sender: FDA-Public Use
  Company Number: CA-JNJFOC-20050901337

PATIENT
  Sex: Female
  Weight: 60 kg

DRUGS (9)
  1. REMICADE [Suspect]
     Route: 042
  2. REMICADE [Suspect]
     Route: 042
  3. REMICADE [Suspect]
     Indication: CROHN'S DISEASE
     Dosage: 2 INFUSIONS IN FALL 2003
     Route: 042
  4. BENADRYL [Concomitant]
     Route: 048
  5. BENADRYL [Concomitant]
     Indication: PREMEDICATION
     Route: 048
  6. CORTISONE ACETATE TAB [Concomitant]
     Indication: PREMEDICATION
     Route: 048
  7. SOLU-CORTEF [Concomitant]
     Dosage: 30 MINUTES BEFORE INFUSION
     Route: 042
  8. SOLU-CORTEF [Concomitant]
     Indication: PREMEDICATION
     Route: 042
  9. PREDNSIONE [Concomitant]
     Dosage: 13 HRS - 7 HRS - 1 HOUR BEFORE INFUSION
     Route: 048

REACTIONS (15)
  - ARTHRALGIA [None]
  - CHEST DISCOMFORT [None]
  - DYSPHAGIA [None]
  - DYSPNOEA [None]
  - ERYTHEMA [None]
  - EYE IRRITATION [None]
  - FLUSHING [None]
  - HEADACHE [None]
  - INFUSION RELATED REACTION [None]
  - MYALGIA [None]
  - OEDEMA [None]
  - PAIN [None]
  - PHARYNGOLARYNGEAL PAIN [None]
  - PRURITUS [None]
  - SENSATION OF FOREIGN BODY [None]
